FAERS Safety Report 9284731 (Version 3)
Quarter: 2013Q3

REPORT INFORMATION
  Report Type: Spontaneous
  Country: US (occurrence: US)
  Receive Date: 20130513
  Receipt Date: 20130716
  Transmission Date: 20140515
  Serious: Yes (Hospitalization)
  Sender: FDA-Public Use
  Company Number: US-BIOGENIDEC-2013BI040650

PATIENT
  Sex: Female

DRUGS (1)
  1. AVONEX [Suspect]
     Indication: MULTIPLE SCLEROSIS
     Route: 030
     Dates: start: 20090406, end: 20110801

REACTIONS (6)
  - Bronchitis [Unknown]
  - Kidney infection [Unknown]
  - Urinary tract infection [Unknown]
  - Gait disturbance [Unknown]
  - Fall [Recovered/Resolved]
  - Disease progression [Unknown]
